FAERS Safety Report 5706189-6 (Version None)
Quarter: 2008Q2

REPORT INFORMATION
  Report Type: 
  Country: None (occurrence: None)
  Receive Date: 20080415
  Receipt Date: 20080403
  Transmission Date: 20081010
  Serious: Yes (Other)
  Sender: FDA-Public Use
  Company Number: AU-SANOFI-SYNTHELABO-A01200800243

PATIENT
  Sex: Female

DRUGS (10)
  1. PARIET [Concomitant]
     Indication: GASTROOESOPHAGEAL REFLUX DISEASE
     Route: 048
     Dates: start: 20070604
  2. NITROLINGUAL [Concomitant]
     Indication: ANGINA PECTORIS
     Route: 060
     Dates: start: 20071204
  3. NASONEX AQUEOUS [Concomitant]
     Indication: RHINORRHOEA
     Route: 055
     Dates: start: 20071204
  4. LIPEX [Concomitant]
     Indication: HYPERCHOLESTEROLAEMIA
     Route: 048
     Dates: start: 20071129
  5. GOPTEN [Concomitant]
     Indication: HYPERTENSION
     Route: 048
     Dates: start: 20071129
  6. DAPA-TABS [Concomitant]
     Indication: HYPERTENSION
     Route: 048
     Dates: start: 20050606, end: 20070830
  7. ASTRIX [Concomitant]
     Indication: PROPHYLAXIS
     Route: 048
     Dates: start: 20060101, end: 20071101
  8. AROPAX [Concomitant]
     Indication: DEPRESSION
     Route: 048
     Dates: start: 20000101, end: 20080101
  9. PLAVIX [Suspect]
     Indication: STENT PLACEMENT
     Route: 048
     Dates: start: 20070702
  10. PLAVIX [Suspect]
     Indication: MYOCARDIAL INFARCTION
     Route: 048
     Dates: start: 20070702

REACTIONS (1)
  - MACULAR DEGENERATION [None]
